FAERS Safety Report 25180524 (Version 1)
Quarter: 2025Q2

REPORT INFORMATION
  Report Type: Spontaneous
  Country: US (occurrence: US)
  Receive Date: 20250409
  Receipt Date: 20250409
  Transmission Date: 20250717
  Serious: Yes (Death)
  Sender: CALLIDITAS THERAPEUTICS
  Company Number: US-Calliditas-2025CAL00556

PATIENT
  Age: 73 Year
  Sex: Male

DRUGS (26)
  1. TARPEYO [Suspect]
     Active Substance: BUDESONIDE
     Indication: IgA nephropathy
     Route: 048
     Dates: start: 20240905
  2. ACETAMINOPHEN [Concomitant]
     Active Substance: ACETAMINOPHEN
  3. AMLODIPINE [Concomitant]
     Active Substance: AMLODIPINE BESYLATE
  4. ATORVASTATIN [Concomitant]
     Active Substance: ATORVASTATIN
  5. BUPROPION [Concomitant]
     Active Substance: BUPROPION
  6. CYCLOSPORINE [Concomitant]
     Active Substance: CYCLOSPORINE
  7. AUSTEDO [Concomitant]
     Active Substance: DEUTETRABENAZINE
  8. ATROPINE\DIPHENOXYLATE [Concomitant]
     Active Substance: ATROPINE\DIPHENOXYLATE
  9. EMPAGLIFLOZIN [Concomitant]
     Active Substance: EMPAGLIFLOZIN
  10. GABAPENTIN [Concomitant]
     Active Substance: GABAPENTIN
  11. KETOCONAZOLE [Concomitant]
     Active Substance: KETOCONAZOLE
  12. LAMOTRIGINE [Concomitant]
     Active Substance: LAMOTRIGINE
  13. LANSOPRAZOLE [Concomitant]
     Active Substance: LANSOPRAZOLE
  14. LISINOPRIL [Concomitant]
     Active Substance: LISINOPRIL
  15. MELATONIN [Concomitant]
     Active Substance: MELATONIN
  16. OMEPRAZOLE [Concomitant]
     Active Substance: OMEPRAZOLE
  17. ONDANSETRON [Concomitant]
     Active Substance: ONDANSETRON
  18. OXYBUTYNIN [Concomitant]
     Active Substance: OXYBUTYNIN
  19. PREDNISONE [Concomitant]
     Active Substance: PREDNISONE
  20. QUETIAPINE [Concomitant]
     Active Substance: QUETIAPINE
  21. SILDENAFIL [Concomitant]
     Active Substance: SILDENAFIL
  22. TADALAFIL [Concomitant]
     Active Substance: TADALAFIL
  23. TAMSULOSIN [Concomitant]
     Active Substance: TAMSULOSIN
  24. ZOLPIDEM [Concomitant]
     Active Substance: ZOLPIDEM TARTRATE
  25. NIFEDIPINE [Concomitant]
     Active Substance: NIFEDIPINE
  26. LEFLUNOMIDE [Concomitant]
     Active Substance: LEFLUNOMIDE

REACTIONS (3)
  - Balance disorder [Unknown]
  - Peripheral swelling [Unknown]
  - Pulmonary embolism [Fatal]

NARRATIVE: CASE EVENT DATE: 20250301
